FAERS Safety Report 11440568 (Version 1)
Quarter: 2015Q3

REPORT INFORMATION
  Report Type: Spontaneous
  Country: US (occurrence: US)
  Receive Date: 20150901
  Receipt Date: 20150901
  Transmission Date: 20151125
  Serious: No
  Sender: FDA-Public Use
  Company Number: US-JNJFOC-20131211506

PATIENT
  Age: 11 Year
  Sex: Female

DRUGS (3)
  1. MINOXIDIL. [Suspect]
     Active Substance: MINOXIDIL
     Indication: ALOPECIA AREATA
     Route: 061
  2. GLUCOCORTICOID [Suspect]
     Active Substance: UNSPECIFIED INGREDIENT
     Indication: ALOPECIA AREATA
     Route: 061
  3. MINOXIDIL. [Suspect]
     Active Substance: MINOXIDIL
     Route: 061

REACTIONS (2)
  - Product use issue [Unknown]
  - Drug ineffective for unapproved indication [Unknown]
